FAERS Safety Report 6590771-0 (Version None)
Quarter: 2010Q1

REPORT INFORMATION
  Report Type: 
  Country: None (occurrence: None)
  Receive Date: 20100219
  Receipt Date: 20100215
  Transmission Date: 20100710
  Serious: Yes (Hospitalization, Other)
  Sender: FDA-Public Use
  Company Number: US-ROXANE LABORATORIES, INC.-2010-RO-00162RO

PATIENT
  Age: 52 Year
  Sex: Female
  Weight: 49 kg

DRUGS (28)
  1. MIDAZOLAM [Suspect]
     Indication: GENERAL ANAESTHESIA
     Dosage: 2 MG
     Dates: start: 20080601, end: 20080601
  2. MIDAZOLAM [Suspect]
     Dosage: 2 MG
     Dates: start: 20051201, end: 20051201
  3. MIDAZOLAM [Suspect]
     Dosage: 2 MG
     Dates: start: 20061201, end: 20061201
  4. PROPOFOL [Suspect]
     Indication: GENERAL ANAESTHESIA
     Dosage: 100 MG
     Dates: start: 20080601, end: 20080601
  5. PROPOFOL [Suspect]
     Dosage: 140 MG
     Dates: start: 20061201, end: 20061201
  6. PROPOFOL [Suspect]
     Dosage: 100 MG
     Dates: start: 20060701, end: 20060701
  7. PROPOFOL [Suspect]
     Dosage: 160 MG
     Dates: start: 20051201, end: 20051201
  8. FENTANYL-100 [Suspect]
     Indication: GENERAL ANAESTHESIA
     Dosage: 100 MCG
     Dates: start: 20080601, end: 20080601
  9. FENTANYL-100 [Suspect]
     Dosage: 160 MCG
     Dates: start: 20061201, end: 20061201
  10. FENTANYL-100 [Suspect]
     Dosage: 50 MCG
     Dates: start: 20051201, end: 20051201
  11. ISOFLURANE [Suspect]
     Indication: GENERAL ANAESTHESIA
     Dates: start: 20080601, end: 20080601
  12. ISOFLURANE [Suspect]
     Dates: start: 20061201, end: 20061201
  13. ISOFLURANE [Suspect]
     Dates: start: 20060701, end: 20060701
  14. ISOFLURANE [Suspect]
     Dates: start: 20051201, end: 20051201
  15. SUCCINYLCHOLINE CHLORIDE [Suspect]
     Indication: GENERAL ANAESTHESIA
     Dates: start: 20061201, end: 20061201
  16. SUCCINYLCHOLINE CHLORIDE [Suspect]
     Dosage: 40 MG
     Dates: start: 20080601, end: 20080601
  17. GABAPENTIN [Suspect]
     Indication: NEURALGIA
  18. TRAMADOL [Suspect]
  19. TRAMADOL [Suspect]
     Dates: start: 20070801
  20. ACETAMINOPHEN W/ PROPOXYPHENE HCL [Suspect]
  21. BUPIVACAINE HCL [Suspect]
     Indication: NERVE BLOCK
     Dates: start: 20060701, end: 20060701
  22. NITROUS OXIDE [Suspect]
     Indication: GENERAL ANAESTHESIA
     Dates: start: 20061201, end: 20061201
  23. NITROUS OXIDE [Suspect]
     Dates: start: 20060701, end: 20060701
  24. PREGABALIN [Suspect]
     Indication: NEURALGIA
  25. DULOXETINE [Suspect]
     Indication: NEURALGIA
  26. ACETAMINOPHEN/HYDROCODONR [Suspect]
  27. NALOXONE [Concomitant]
     Indication: ANAESTHESIA REVERSAL
     Dosage: 200 MCG
  28. FLUMAZENIL [Concomitant]
     Indication: ANAESTHESIA REVERSAL
     Dosage: 0.4 MG

REACTIONS (5)
  - COMPLEX REGIONAL PAIN SYNDROME [None]
  - DEPRESSED LEVEL OF CONSCIOUSNESS [None]
  - DISSOCIATIVE DISORDER [None]
  - PROCEDURAL NAUSEA [None]
  - PROCEDURAL VOMITING [None]
